FAERS Safety Report 5035824-3 (Version None)
Quarter: 2006Q2

REPORT INFORMATION
  Report Type: 
  Country: None (occurrence: None)
  Receive Date: 20060622
  Receipt Date: 20060608
  Transmission Date: 20061013
  Serious: Yes (Life-Threatening, Hospitalization, Other)
  Sender: FDA-Public Use
  Company Number: 200611085BCC

PATIENT
  Age: 64 Year
  Sex: Female
  Weight: 74.8435 kg

DRUGS (14)
  1. ALEVE [Suspect]
     Indication: BACK PAIN
     Dosage: 440 MG, TID, ORAL
     Route: 048
     Dates: start: 20060122
  2. ASPIRIN [Suspect]
     Indication: ISCHAEMIC HEART DISEASE PROPHYLAXIS
     Dosage: 81 MG, QD, ORAL
     Route: 048
  3. DEMADEX [Concomitant]
  4. IMDUR [Concomitant]
  5. CARDIZEM CD [Concomitant]
  6. PREVACID [Concomitant]
  7. PRAVACHOL [Concomitant]
  8. REGLAN [Concomitant]
  9. DUONEB [Concomitant]
  10. COMBIVENT [Concomitant]
  11. ADVAIR DISKUS 100/50 [Concomitant]
  12. CRESTOR [Concomitant]
  13. NITROSTAT [Concomitant]
  14. OVER THE COUNTER COUGH MEDICINE [Concomitant]

REACTIONS (12)
  - ANAPHYLACTIC SHOCK [None]
  - BLOOD GLUCOSE INCREASED [None]
  - CARDIAC ARREST [None]
  - CORYNEBACTERIUM INFECTION [None]
  - ENTEROCOCCAL INFECTION [None]
  - PEPTIC ULCER HAEMORRHAGE [None]
  - PROCEDURAL COMPLICATION [None]
  - RESPIRATORY ARREST [None]
  - RESPIRATORY FAILURE [None]
  - RESPIRATORY TRACT INFECTION [None]
  - SOMNOLENCE [None]
  - TRICHOMONIASIS [None]
